FAERS Safety Report 21793735 (Version 4)
Quarter: 2023Q1

REPORT INFORMATION
  Report Type: Spontaneous
  Country: NL (occurrence: NL)
  Receive Date: 20221229
  Receipt Date: 20230321
  Transmission Date: 20230418
  Serious: Yes (Hospitalization, Other)
  Sender: FDA-Public Use
  Company Number: NL-VIIV HEALTHCARE LIMITED-NL2022EME134071

PATIENT

DRUGS (2)
  1. VOCABRIA [Suspect]
     Active Substance: CABOTEGRAVIR SODIUM
     Indication: Product used for unknown indication
     Dosage: UNK
     Route: 030
  2. RILPIVIRINE [Suspect]
     Active Substance: RILPIVIRINE
     Indication: Product used for unknown indication
     Dosage: UNK
     Route: 030

REACTIONS (8)
  - Tuberculosis [Unknown]
  - Injection site necrosis [Unknown]
  - Vasculitis [Unknown]
  - Injection site extravasation [Unknown]
  - Pyrexia [Unknown]
  - Abscess [Recovering/Resolving]
  - Wrong technique in product usage process [Unknown]
  - Incorrect route of product administration [Unknown]
